FAERS Safety Report 9376125 (Version 2)
Quarter: 2013Q4

REPORT INFORMATION
  Report Type: Spontaneous
  Country: None (occurrence: FR)
  Receive Date: 20130630
  Receipt Date: 20131106
  Transmission Date: 20140711
  Serious: Yes (Hospitalization)
  Sender: FDA-Public Use
  Company Number: FR-TEVA-416190ISR

PATIENT
  Age: 85 Year
  Sex: Female

DRUGS (7)
  1. FUROSEMIDE TEVA 40MG [Suspect]
     Indication: CARDIAC FAILURE
     Dosage: 160 MILLIGRAM DAILY;
     Route: 048
     Dates: end: 201306
  2. FUROSEMIDE TEVA 40MG [Suspect]
     Dosage: 120 MILLIGRAM DAILY; 2DF IN THE MORNING, 1DF AT LUNCH
     Route: 048
     Dates: start: 201304
  3. DIFFU K [Concomitant]
     Route: 048
  4. LYSANXIA [Concomitant]
     Route: 048
     Dates: end: 201303
  5. NOVONORM [Concomitant]
     Dates: end: 201304
  6. JANUVIA 100MG [Concomitant]
     Route: 048
  7. AMLODIPINE 5MG [Concomitant]
     Dosage: 3 DOSAGE FORMS DAILY; 2 DF ON MORNING AND 1 DF AT LUNCH
     Route: 048
     Dates: start: 201304, end: 2013

REACTIONS (2)
  - Somnolence [Recovered/Resolved]
  - Cardiac failure [Recovered/Resolved]
